FAERS Safety Report 8117293-X (Version None)
Quarter: 2012Q1

REPORT INFORMATION
  Report Type: 
  Country: None (occurrence: None)
  Receive Date: 20120206
  Receipt Date: 20120130
  Transmission Date: 20120608
  Serious: Yes (Other)
  Sender: FDA-Public Use
  Company Number: US-ASTRAZENECA-2012SE06368

PATIENT

DRUGS (2)
  1. TAMOXIFEN CITRATE [Interacting]
     Route: 048
  2. ARIMIDEX [Suspect]
     Route: 048

REACTIONS (1)
  - LABELLED DRUG-DRUG INTERACTION MEDICATION ERROR [None]
